FAERS Safety Report 11037154 (Version 1)
Quarter: 2015Q2

REPORT INFORMATION
  Report Type: Spontaneous
  Country: US (occurrence: US)
  Receive Date: 20150416
  Receipt Date: 20150416
  Transmission Date: 20150821
  Serious: No
  Sender: FDA-Public Use
  Company Number: US-AMGEN-USASP2015036329

PATIENT
  Age: 67 Year
  Sex: Female

DRUGS (1)
  1. ENBREL [Suspect]
     Active Substance: ETANERCEPT
     Indication: RHEUMATOID ARTHRITIS
     Dosage: 50 MG, QWK
     Route: 065
     Dates: start: 20090202, end: 20150402

REACTIONS (8)
  - Oropharyngeal pain [Not Recovered/Not Resolved]
  - Ear haemorrhage [Not Recovered/Not Resolved]
  - Ear discomfort [Not Recovered/Not Resolved]
  - Ear infection [Not Recovered/Not Resolved]
  - Infection [Recovered/Resolved]
  - Hearing impaired [Not Recovered/Not Resolved]
  - Frustration [Not Recovered/Not Resolved]
  - Tympanic membrane disorder [Not Recovered/Not Resolved]

NARRATIVE: CASE EVENT DATE: 201504
